FAERS Safety Report 14154771 (Version 1)
Quarter: 2017Q4

REPORT INFORMATION
  Report Type: Spontaneous
  Country: UM (occurrence: UM)
  Receive Date: 20171102
  Receipt Date: 20171102
  Transmission Date: 20180321
  Serious: Yes (Other)
  Sender: FDA-Public Use
  Company Number: None

PATIENT
  Age: 60 Year
  Sex: Female
  Weight: 69.75 kg

DRUGS (9)
  1. POTASSIUM [Concomitant]
     Active Substance: POTASSIUM
  2. TRAJENTA [Concomitant]
     Active Substance: LINAGLIPTIN
  3. LISINOPRIL. [Concomitant]
     Active Substance: LISINOPRIL
  4. LUTEIN [Concomitant]
     Active Substance: LUTEIN
  5. ZEAXANTHIN [Concomitant]
     Active Substance: ZEAXANTHIN
  6. ZERTIC [Concomitant]
  7. METFORMIN [Concomitant]
     Active Substance: METFORMIN HYDROCHLORIDE
  8. CALCIUM [Concomitant]
     Active Substance: CALCIUM
  9. INVOKAMET [Suspect]
     Active Substance: CANAGLIFLOZIN\METFORMIN HYDROCHLORIDE
     Indication: DIABETES MELLITUS
     Dates: start: 20151027, end: 20161227

REACTIONS (3)
  - Dehydration [None]
  - Visual acuity reduced [None]
  - Retinopathy [None]

NARRATIVE: CASE EVENT DATE: 20160815
